FAERS Safety Report 6763814-9 (Version None)
Quarter: 2010Q2

REPORT INFORMATION
  Report Type: 
  Country: None (occurrence: None)
  Receive Date: 20100608
  Receipt Date: 20100528
  Transmission Date: 20101027
  Serious: Yes (Other)
  Sender: FDA-Public Use
  Company Number: 7006516

PATIENT
  Age: 45 Year
  Sex: Female

DRUGS (2)
  1. REBIF [Suspect]
     Indication: DRUG USE FOR UNKNOWN INDICATION
     Dosage: 44 MCG, 3 IN 1 WK, SUBCUTANEOUS
     Route: 058
     Dates: start: 20031103
  2. UNSPECIFIED SEIZURE MEDICATION (ALL OTHER THERAPEUTIC PRODUCTS) [Suspect]
     Dosage: 1 IN 1 D; 2 IN 1  D

REACTIONS (3)
  - COGNITIVE DISORDER [None]
  - DRUG INEFFECTIVE [None]
  - INJECTION SITE RASH [None]
